FAERS Safety Report 13076688 (Version 1)
Quarter: 2016Q4

REPORT INFORMATION
  Report Type: Spontaneous
  Country: EG (occurrence: EG)
  Receive Date: 20161230
  Receipt Date: 20161230
  Transmission Date: 20170207
  Serious: Yes (Other)
  Sender: FDA-Public Use
  Company Number: EG-AMGEN-EGYSP2016183682

PATIENT
  Age: 50 Year
  Sex: Female

DRUGS (7)
  1. ENBREL [Suspect]
     Active Substance: ETANERCEPT
     Indication: RHEUMATOID ARTHRITIS
     Dosage: 50 MG, UNK
     Route: 058
  2. OMEPAK [Concomitant]
     Dosage: ONE TABLET ON EMPTY STOMACH FOR THE STOMACH
  3. FOLIC ACID. [Concomitant]
     Active Substance: FOLIC ACID
     Dosage: 2 TABELTS AFTER LUNCH DAILY EXCEPT THURSDAY
  4. HOSTACORTIN H [Concomitant]
     Dosage: 1.5 TABLET AFTER BREAKFAST DAILY FOR A MONTH THEN 1 TABLET DAILY AFTER BREAKFAST
  5. MOBIC [Concomitant]
     Active Substance: MELOXICAM
     Dosage: 1 TABLET BEFORE SLEEP FOR A MONTH AND THEN WHEN NEEDED
  6. PREGALEX [Concomitant]
     Dosage: 1 TABLET BEFORE SLEEP DAILY
  7. METHOTREXATE SODIUM. [Concomitant]
     Active Substance: METHOTREXATE SODIUM
     Dosage: 2.5 MG, 4 TABLETS AFTER LUNCH AND 4 TABLETS AFTER DINNER EVERY THURSDAY WEEKLY

REACTIONS (2)
  - Drug ineffective [Unknown]
  - Haemolytic anaemia [Unknown]
